FAERS Safety Report 19829093 (Version 1)
Quarter: 2021Q3

REPORT INFORMATION
  Report Type: Spontaneous
  Country: US (occurrence: US)
  Receive Date: 20210914
  Receipt Date: 20210914
  Transmission Date: 20211014
  Serious: No
  Sender: FDA-Public Use
  Company Number: US-GILEAD-2021-0548029

PATIENT
  Sex: Female

DRUGS (6)
  1. PRAZOSIN HYDROCHLORIDE. [Concomitant]
     Active Substance: PRAZOSIN HYDROCHLORIDE
  2. TORADOL [Concomitant]
     Active Substance: KETOROLAC TROMETHAMINE
  3. BUSPIRONE HYDROCHLORIDE. [Concomitant]
     Active Substance: BUSPIRONE HYDROCHLORIDE
  4. WELLBUTRIN SR [Concomitant]
     Active Substance: BUPROPION HYDROCHLORIDE
  5. SOFOSBUVIR;VELPATASVIR [Suspect]
     Active Substance: SOFOSBUVIR\VELPATASVIR
     Indication: CHRONIC HEPATITIS C
     Dosage: 1 DOSAGE FORM, QD
     Route: 048
     Dates: start: 20210805
  6. VISTARIL [Concomitant]
     Active Substance: HYDROXYZINE PAMOATE

REACTIONS (3)
  - Fatigue [Unknown]
  - Intentional dose omission [Unknown]
  - Back pain [Unknown]
